FAERS Safety Report 16164258 (Version 1)
Quarter: 2019Q2

REPORT INFORMATION
  Report Type: Report from Study
  Country: US (occurrence: US)
  Receive Date: 20190405
  Receipt Date: 20190405
  Transmission Date: 20190711
  Serious: Yes (Other)
  Sender: FDA-Public Use
  Company Number: PHEH2019US014514

PATIENT
  Sex: Female

DRUGS (1)
  1. ENTRESTO [Suspect]
     Active Substance: SACUBITRIL\VALSARTAN
     Indication: PRODUCT USED FOR UNKNOWN INDICATION
     Route: 048

REACTIONS (6)
  - Drug ineffective [Unknown]
  - Oropharyngeal discomfort [Unknown]
  - Dysphagia [Unknown]
  - Blood potassium increased [Unknown]
  - Fatigue [Unknown]
  - Gastric cancer [Unknown]
